FAERS Safety Report 7289280-5 (Version None)
Quarter: 2011Q1

REPORT INFORMATION
  Report Type: 
  Country: None (occurrence: None)
  Receive Date: 20110211
  Receipt Date: 20110208
  Transmission Date: 20110831
  Serious: Yes (Other)
  Sender: FDA-Public Use
  Company Number: FR-PFIZER INC-2010147900

PATIENT
  Age: 46 Year
  Sex: Female
  Weight: 56 kg

DRUGS (1)
  1. LYRICA [Suspect]
     Indication: NERVE COMPRESSION
     Dosage: 150 MG, 2X/DAY
     Dates: start: 20100514, end: 20100615

REACTIONS (15)
  - BURNING SENSATION [None]
  - MYALGIA [None]
  - PALPITATIONS [None]
  - ARTHRALGIA [None]
  - CHONDROPATHY [None]
  - GAIT DISTURBANCE [None]
  - MUSCULAR WEAKNESS [None]
  - AMENORRHOEA [None]
  - VISUAL IMPAIRMENT [None]
  - DIABETES MELLITUS [None]
  - JOINT DISLOCATION [None]
  - SENSATION OF HEAVINESS [None]
  - INSOMNIA [None]
  - MUSCULOSKELETAL STIFFNESS [None]
  - JOINT SWELLING [None]
